FAERS Safety Report 18590620 (Version 1)
Quarter: 2020Q4

REPORT INFORMATION
  Report Type: Spontaneous
  Country: FR (occurrence: FR)
  Receive Date: 20201208
  Receipt Date: 20201208
  Transmission Date: 20210114
  Serious: Yes (Other)
  Sender: FDA-Public Use
  Company Number: FR-MYLANLABS-2020M1099073

PATIENT
  Age: 51 Year
  Sex: Male
  Weight: 76 kg

DRUGS (1)
  1. KETOPROFENE MYLAN LP 100 MG, COMPRIM? S?CABLE ? LIB?RATION PROLONG?E [Suspect]
     Active Substance: KETOPROFEN
     Indication: RENAL COLIC
     Dosage: 100 KILO-INTERNATIONAL UNIT, TOTAL
     Route: 048
     Dates: start: 20201020

REACTIONS (1)
  - Eyelid oedema [Recovered/Resolved]

NARRATIVE: CASE EVENT DATE: 20201020
